FAERS Safety Report 6568023-4 (Version None)
Quarter: 2010Q1

REPORT INFORMATION
  Report Type: 
  Country: None (occurrence: None)
  Receive Date: 20100203
  Receipt Date: 20100121
  Transmission Date: 20100710
  Serious: Yes (Other)
  Sender: FDA-Public Use
  Company Number: PHHY2009JP53714

PATIENT
  Age: 64 Year
  Sex: Female

DRUGS (4)
  1. DIOVAN [Suspect]
     Indication: HYPERTENSION
     Dosage: 40 MG, DAILY
     Route: 048
     Dates: start: 20090421, end: 20091115
  2. DIOVAN [Suspect]
     Dosage: 80 MG, DAILY
     Route: 048
     Dates: start: 20091116, end: 20100107
  3. DIOVAN [Suspect]
     Dosage: 40 MG, DAILY
     Route: 048
     Dates: start: 20100108
  4. LOCHOL [Concomitant]
     Dosage: 10 MG, UNK
     Route: 048
     Dates: start: 20081111

REACTIONS (3)
  - BLOOD PRESSURE INCREASED [None]
  - RASH [None]
  - RIB FRACTURE [None]
